FAERS Safety Report 16903913 (Version 2)
Quarter: 2019Q4

REPORT INFORMATION
  Report Type: Spontaneous
  Country: US (occurrence: US)
  Receive Date: 20191010
  Receipt Date: 20191017
  Transmission Date: 20200122
  Serious: Yes (Hospitalization, Other)
  Sender: FDA-Public Use
  Company Number: US-PFIZER INC-2019438939

PATIENT
  Age: 71 Year
  Sex: Male

DRUGS (1)
  1. SEPTRA DS [Suspect]
     Active Substance: SULFAMETHOXAZOLE\TRIMETHOPRIM
     Indication: ANTI-INFECTIVE THERAPY
     Dosage: UNK, 2X/DAY

REACTIONS (3)
  - Cholestasis [Recovered/Resolved]
  - Hepatitis [Recovered/Resolved]
  - Hypersensitivity [Unknown]
